FAERS Safety Report 5965182-9 (Version None)
Quarter: 2008Q4

REPORT INFORMATION
  Report Type: 
  Country: None (occurrence: None)
  Receive Date: 20081125
  Receipt Date: 20081117
  Transmission Date: 20090506
  Serious: Yes (Hospitalization, Other)
  Sender: FDA-Public Use
  Company Number: US-JNJFOC-20081005492

PATIENT
  Sex: Female
  Weight: 78.02 kg

DRUGS (2)
  1. INFLIXIMAB [Suspect]
     Dosage: TOTAL OF 8 INFUSIONS ADMINISTERED
     Route: 042
  2. INFLIXIMAB [Suspect]
     Indication: PSORIASIS
     Route: 042

REACTIONS (1)
  - COLON CANCER [None]
